FAERS Safety Report 17351636 (Version 1)
Quarter: 2020Q1

REPORT INFORMATION
  Report Type: Report from Study
  Country: US (occurrence: US)
  Receive Date: 20200130
  Receipt Date: 20200130
  Transmission Date: 20200409
  Serious: No
  Sender: FDA-Public Use
  Company Number: NVSC2020US024387

PATIENT
  Sex: Female

DRUGS (1)
  1. ILARIS [Suspect]
     Active Substance: CANAKINUMAB
     Indication: HEREDITARY NEUROPATHIC AMYLOIDOSIS
     Dosage: 56 MG EVERY 8 WEEKS
     Route: 058

REACTIONS (1)
  - Inappropriate schedule of product administration [Unknown]
